FAERS Safety Report 4999285-2 (Version None)
Quarter: 2006Q2

REPORT INFORMATION
  Report Type: 
  Country: None (occurrence: None)
  Receive Date: 20060511
  Receipt Date: 20060505
  Transmission Date: 20061013
  Serious: Yes (Other)
  Sender: FDA-Public Use
  Company Number: PHRM2006FR01508

PATIENT
  Age: 80 Year
  Sex: Female

DRUGS (6)
  1. ASPIRIN [Concomitant]
  2. PLAVIX [Concomitant]
  3. DITROPAN [Concomitant]
  4. ATHYMIL [Concomitant]
  5. EXELON [Suspect]
     Indication: DEMENTIA
     Route: 048
     Dates: start: 20040101, end: 20060324
  6. EBIXA [Suspect]
     Route: 048
     Dates: start: 20050101, end: 20060324

REACTIONS (4)
  - DRUG INTERACTION [None]
  - EPILEPSY [None]
  - IMPAIRED SELF-CARE [None]
  - PETIT MAL EPILEPSY [None]
